FAERS Safety Report 6124493-7 (Version None)
Quarter: 2009Q1

REPORT INFORMATION
  Report Type: 
  Country: None (occurrence: None)
  Receive Date: 20090317
  Receipt Date: 20090317
  Transmission Date: 20090719
  Serious: No
  Sender: FDA-Public Use
  Company Number: None

PATIENT
  Sex: Male
  Weight: 92.91 kg

DRUGS (18)
  1. VICODIN [Suspect]
     Dosage: 5 MG - 500 MG ORAL
     Route: 048
     Dates: start: 20090206, end: 20090316
  2. AMBIEN [Concomitant]
  3. ASPIRIN [Concomitant]
  4. AVAPRO [Concomitant]
  5. COLACE (DOCUSATE SODIUM) [Concomitant]
  6. GLUCOPHAGE [Concomitant]
  7. GLYBURIDE [Concomitant]
  8. HYDROCHLOROTHIAZIDE [Concomitant]
  9. HUMIRA [Concomitant]
  10. MYCOSTATIN MOUTHWASH (NYSTATIN SUSPENSION (MOUTHWASH)) [Concomitant]
  11. NAPROXEN [Concomitant]
  12. NEURONTIN [Concomitant]
  13. NIFEDIPINE XL (NIFEDIPINE (SUSTAINED RELE... [Concomitant]
  14. OMEPRAZOLE [Concomitant]
  15. PERCOCET [Concomitant]
  16. PREDNISONE [Concomitant]
  17. TENORMIN [Concomitant]
  18. ZOCOR [Concomitant]

REACTIONS (1)
  - CONSTIPATION [None]
